FAERS Safety Report 6499806-7 (Version None)
Quarter: 2009Q4

REPORT INFORMATION
  Report Type: 
  Country: None (occurrence: None)
  Receive Date: 20091214
  Receipt Date: 20091130
  Transmission Date: 20100525
  Serious: Yes (Hospitalization)
  Sender: FDA-Public Use
  Company Number: BVT-000125

PATIENT
  Sex: Female

DRUGS (6)
  1. KINERET [Suspect]
     Indication: BONE MARROW DISORDER
     Dosage: (100 MG QD)
  2. CALCIUM CARBONATE [Concomitant]
  3. PREDNISONE [Concomitant]
  4. SERTRALINE HYDROCHLORIDE [Concomitant]
  5. DOXEPIN HCL [Concomitant]
  6. ACETAMINOPHEN AND OXYCODONE HCL [Concomitant]

REACTIONS (1)
  - REFUSAL OF TREATMENT BY PATIENT [None]
